FAERS Safety Report 18352192 (Version 2)
Quarter: 2020Q4

REPORT INFORMATION
  Report Type: Spontaneous
  Country: US (occurrence: US)
  Receive Date: 20201006
  Receipt Date: 20201006
  Transmission Date: 20210114
  Serious: No
  Sender: FDA-Public Use
  Company Number: US-ALLERGAN-2023480US

PATIENT
  Sex: Male
  Weight: 68.03 kg

DRUGS (4)
  1. LINZESS [Suspect]
     Active Substance: LINACLOTIDE
     Indication: CONSTIPATION
     Dosage: 2 DF
  2. LINZESS [Suspect]
     Active Substance: LINACLOTIDE
     Indication: CONSTIPATION
     Dosage: 145 ?G, QAM
  3. MIRALAX [Concomitant]
     Active Substance: POLYETHYLENE GLYCOL 3350
     Indication: CONSTIPATION
     Dosage: UNK
  4. LINZESS [Suspect]
     Active Substance: LINACLOTIDE
     Dosage: 72 ?G
     Dates: start: 20200501

REACTIONS (3)
  - Product packaging quantity issue [Unknown]
  - Faeces soft [Unknown]
  - Drug ineffective [Unknown]
